FAERS Safety Report 19410301 (Version 3)
Quarter: 2021Q3

REPORT INFORMATION
  Report Type: Spontaneous
  Country: DE (occurrence: DE)
  Receive Date: 20210614
  Receipt Date: 20210712
  Transmission Date: 20211014
  Serious: Yes (Hospitalization)
  Sender: FDA-Public Use
  Company Number: DE-TEVA-2021-DE-1921437

PATIENT
  Age: 30 Year
  Sex: Female
  Weight: 71 kg

DRUGS (8)
  1. AJOVY [Concomitant]
     Active Substance: FREMANEZUMAB-VFRM
     Indication: MIGRAINE PROPHYLAXIS
     Route: 058
     Dates: start: 20201014, end: 20201014
  2. IBUPROFEN 800 MG [Suspect]
     Active Substance: IBUPROFEN
     Dosage: 400 MILLIGRAM DAILY;
     Route: 048
  3. RIZATRIPTAN 10 MG [Concomitant]
     Active Substance: RIZATRIPTAN
     Dosage: 10 MILLIGRAM DAILY;
     Route: 048
  4. IBUPROFEN 400 MG [Concomitant]
     Active Substance: IBUPROFEN
     Dosage: 400 MILLIGRAM DAILY;
     Route: 048
  5. AJOVY [Concomitant]
     Active Substance: FREMANEZUMAB-VFRM
     Dosage: LAST DOSAGE PRIOR TO AE: 14?MAY?2021
     Route: 058
     Dates: start: 20210514
  6. IBUPROFEN 800 MG [Suspect]
     Active Substance: IBUPROFEN
     Indication: MIGRAINE PROPHYLAXIS
     Route: 048
  7. AJOVY [Concomitant]
     Active Substance: FREMANEZUMAB-VFRM
     Route: 058
     Dates: start: 20210204, end: 20210204
  8. QUETIAPIN [Concomitant]
     Active Substance: QUETIAPINE
     Dosage: 25 MILLIGRAM DAILY;
     Route: 048

REACTIONS (2)
  - Medication overuse headache [Recovered/Resolved]
  - Intentional product misuse [Recovered/Resolved]

NARRATIVE: CASE EVENT DATE: 20210528
